FAERS Safety Report 20581584 (Version 1)
Quarter: 2022Q1

REPORT INFORMATION
  Report Type: Spontaneous
  Country: DE (occurrence: US)
  Receive Date: 20220311
  Receipt Date: 20220311
  Transmission Date: 20220423
  Serious: Yes (Other)
  Sender: FDA-Public Use
  Company Number: DE-PROCTER_AND_GAMBLE-PH22001801

PATIENT
  Age: 19 Year
  Sex: Female
  Weight: 69 kg

DRUGS (2)
  1. DIPHENHYDRAMINE HYDROCHLORIDE [Suspect]
     Active Substance: DIPHENHYDRAMINE HYDROCHLORIDE
     Indication: Product used for unknown indication
     Dosage: 4.325 GRAM
     Route: 048
  2. ACETAMINOPHEN [Suspect]
     Active Substance: ACETAMINOPHEN
     Indication: Product used for unknown indication
     Dosage: 86.5 GRAM
     Route: 048

REACTIONS (7)
  - Alanine aminotransferase increased [Recovering/Resolving]
  - Hepatotoxicity [Unknown]
  - Haemolysis [Unknown]
  - Overdose [Unknown]
  - Vomiting [Unknown]
  - Glucose-6-phosphate dehydrogenase deficiency [Unknown]
  - Blood bilirubin increased [Unknown]
